FAERS Safety Report 11180298 (Version 1)
Quarter: 2015Q2

REPORT INFORMATION
  Report Type: Spontaneous
  Country: US (occurrence: US)
  Receive Date: 20150611
  Receipt Date: 20150611
  Transmission Date: 20150821
  Serious: Yes (Hospitalization)
  Sender: FDA-Public Use
  Company Number: US-PFIZER INC-2015194344

PATIENT
  Sex: Female

DRUGS (1)
  1. PRISTIQ EXTENDED RELEASE [Suspect]
     Active Substance: DESVENLAFAXINE SUCCINATE
     Dosage: 50 MG, UNK

REACTIONS (10)
  - Glaucoma [Unknown]
  - Thirst [Unknown]
  - Blood sodium decreased [Unknown]
  - Gastric disorder [Unknown]
  - Constipation [Unknown]
  - Haemorrhage [Unknown]
  - Dehydration [Unknown]
  - Dizziness [Unknown]
  - Dry mouth [Unknown]
  - Thrombosis [Unknown]
